FAERS Safety Report 13269111 (Version 1)
Quarter: 2017Q1

REPORT INFORMATION
  Report Type: Spontaneous
  Country: RU (occurrence: RU)
  Receive Date: 20170224
  Receipt Date: 20170224
  Transmission Date: 20170428
  Serious: Yes (Other)
  Sender: FDA-Public Use
  Company Number: RU-PFIZER INC-2017077452

PATIENT
  Age: 36 Year
  Sex: Female
  Weight: 54 kg

DRUGS (2)
  1. RELPAX [Suspect]
     Active Substance: ELETRIPTAN HYDROBROMIDE
     Indication: MIGRAINE
     Dosage: 40 MG ONCE PER DAY IN CASE OF MIGRAINE HEADACHE (MAX DOSE 80 MG)
     Route: 048
     Dates: start: 2014, end: 201501
  2. RELPAX [Suspect]
     Active Substance: ELETRIPTAN HYDROBROMIDE
     Dosage: 40 MG ONCE PER DAY IN CASE OF MIGRAINE HEADACHE (MAX DOSE 80 MG)
     Route: 048
     Dates: start: 201612

REACTIONS (5)
  - Chest discomfort [Recovered/Resolved]
  - Mucosal dryness [Recovered/Resolved]
  - Oropharyngeal discomfort [Recovered/Resolved]
  - Bradycardia [Recovered/Resolved]
  - Myalgia [Recovered/Resolved]

NARRATIVE: CASE EVENT DATE: 2014
